FAERS Safety Report 6419940-7 (Version None)
Quarter: 2009Q4

REPORT INFORMATION
  Report Type: 
  Country: None (occurrence: None)
  Receive Date: 20091029
  Receipt Date: 20091022
  Transmission Date: 20100525
  Serious: Yes (Death, Hospitalization)
  Sender: FDA-Public Use
  Company Number: IT-ELI_LILLY_AND_COMPANY-IT200910006090

PATIENT
  Sex: Male

DRUGS (5)
  1. GEMCITABINE HCL [Suspect]
     Indication: PANCREATIC CARCINOMA
     Dosage: 1000 MG/M2 (1960 MG) WEEKLY (1/W)
     Route: 042
     Dates: start: 20071213, end: 20071220
  2. OTHER PHARMA COMPANY INV DRUG [Suspect]
     Indication: PANCREATIC CARCINOMA
     Dosage: 200 MG, DAILY (1/D)
     Route: 048
     Dates: start: 20071213, end: 20071227
  3. LASIX [Concomitant]
     Dosage: UNK, UNK
     Route: 048
     Dates: start: 20071120
  4. LASIX [Concomitant]
     Route: 042
     Dates: start: 20071227
  5. LANOXIN [Concomitant]
     Route: 048
     Dates: start: 20071120

REACTIONS (4)
  - ASCITES [None]
  - EPILEPSY [None]
  - PYREXIA [None]
  - THROMBOCYTOPENIA [None]
